FAERS Safety Report 5750619-0 (Version None)
Quarter: 2008Q2

REPORT INFORMATION
  Report Type: 
  Country: None (occurrence: None)
  Receive Date: 20080528
  Receipt Date: 20080523
  Transmission Date: 20081010
  Serious: Yes (Hospitalization)
  Sender: FDA-Public Use
  Company Number: IT-AVENTIS-200812313EU

PATIENT
  Age: 87 Year
  Sex: Male

DRUGS (8)
  1. LASIX [Suspect]
     Route: 048
     Dates: start: 20080430, end: 20080504
  2. TAREG [Concomitant]
     Route: 048
  3. TICLOPIDINE HCL [Concomitant]
     Route: 048
  4. PERIDON                            /00498201/ [Concomitant]
     Route: 048
  5. PRAVASELECT [Concomitant]
     Route: 048
  6. PANTORC [Concomitant]
  7. AVODART [Concomitant]
  8. MINITRAN                           /00003201/ [Concomitant]

REACTIONS (5)
  - CONDITION AGGRAVATED [None]
  - HYPOVOLAEMIA [None]
  - MEDICATION ERROR [None]
  - ORTHOSTATIC HYPOTENSION [None]
  - RENAL IMPAIRMENT [None]
